FAERS Safety Report 12446992 (Version 1)
Quarter: 2016Q2

REPORT INFORMATION
  Report Type: Spontaneous
  Country: DE (occurrence: DE)
  Receive Date: 20160608
  Receipt Date: 20160608
  Transmission Date: 20160815
  Serious: Yes (Other)
  Sender: FDA-Public Use
  Company Number: DE-AUROBINDO-AUR-APL-2016-07499

PATIENT
  Age: 31 Year
  Sex: Male

DRUGS (2)
  1. PROMETHAZINE [Suspect]
     Active Substance: PROMETHAZINE\PROMETHAZINE HYDROCHLORIDE
     Indication: SUBSTANCE DEPENDENCE
     Dosage: 125 MG, UNK
     Route: 048
     Dates: start: 20151012
  2. QUETIAPINE. [Suspect]
     Active Substance: QUETIAPINE
     Indication: WITHDRAWAL SYNDROME
     Dosage: 50 MG, UNK
     Route: 048
     Dates: start: 20151012, end: 20151105

REACTIONS (1)
  - Restless legs syndrome [Recovered/Resolved]

NARRATIVE: CASE EVENT DATE: 20151023
